FAERS Safety Report 9628012 (Version 3)
Quarter: 2015Q4

REPORT INFORMATION
  Report Type: Report from Study
  Country: FR (occurrence: FR)
  Receive Date: 20131016
  Receipt Date: 20151105
  Transmission Date: 20160305
  Serious: Yes (Hospitalization)
  Sender: FDA-Public Use
  Company Number: FR-ROCHE-1286082

PATIENT
  Age: 43 Year
  Sex: Female

DRUGS (9)
  1. EFFEXOR [Concomitant]
     Active Substance: VENLAFAXINE HYDROCHLORIDE
     Route: 065
     Dates: start: 2007
  2. RISPERDAL [Concomitant]
     Active Substance: RISPERIDONE
     Route: 065
     Dates: start: 2007
  3. ATARAX [Concomitant]
     Active Substance: HYDROXYZINE\HYDROXYZINE HYDROCHLORIDE
     Route: 065
     Dates: start: 20130329
  4. PLACEBO [Suspect]
     Active Substance: UNSPECIFIED INGREDIENT
     Dosage: MAINTENANCE DOSE, START DATE ESTIMATED AS PER FREQUENCY?DATE OF LAST DOSE PRIOR TO SAE: 01/AUG/2013
     Route: 042
     Dates: start: 20130328, end: 20130801
  5. THERALENE (FRANCE) [Concomitant]
     Active Substance: TRIMEPRAZINE
     Route: 065
     Dates: start: 20130329
  6. PLACEBO [Suspect]
     Active Substance: UNSPECIFIED INGREDIENT
     Indication: HER-2 POSITIVE BREAST CANCER
     Dosage: LOADING DOSE CYCLE 1 ONLY
     Route: 042
     Dates: start: 20130307, end: 20130307
  7. TRASTUZUMAB [Suspect]
     Active Substance: TRASTUZUMAB
     Indication: HER-2 POSITIVE BREAST CANCER
     Dosage: LOADING DOSE CYCLE 1 ONLY
     Route: 042
     Dates: start: 20130307, end: 20130307
  8. TOPALGIC (FRANCE) [Concomitant]
     Active Substance: TRAMADOL
     Route: 065
     Dates: start: 20130125
  9. TRASTUZUMAB [Suspect]
     Active Substance: TRASTUZUMAB
     Dosage: MAINTENANCE DOSE, START DATE ESTIMATED AS PER FREQUENCY?DATE OF LAST DOSE PRIOR TO SAE: 01/AUG/2013
     Route: 042
     Dates: start: 20130328, end: 20130801

REACTIONS (1)
  - Breast pain [Recovered/Resolved]

NARRATIVE: CASE EVENT DATE: 20130712
